FAERS Safety Report 16310959 (Version 1)
Quarter: 2019Q2

REPORT INFORMATION
  Report Type: Spontaneous
  Country: US (occurrence: US)
  Receive Date: 20190514
  Receipt Date: 20190514
  Transmission Date: 20190711
  Serious: Yes (Other)
  Sender: FDA-Public Use
  Company Number: US-PURDUE-GBR-2019-0066453

PATIENT
  Age: 17 Year
  Sex: Male

DRUGS (11)
  1. NON-PMN MORPHINE SULFATE [Suspect]
     Active Substance: MORPHINE SULFATE
     Indication: CANCER PAIN
     Dosage: 2 MG, Q1H (2 MG MORPHINE PER HOUR BY CONTINUOUS INFUSION)
     Route: 041
  2. FENTANYL. [Suspect]
     Active Substance: FENTANYL
     Dosage: UNK (CLINICIAN BOLUSES EVERY 30 MINUTES)
     Route: 065
  3. FENTANYL. [Suspect]
     Active Substance: FENTANYL
     Dosage: 109 MCG, Q1H (47 BOOSTS AND 107 ATTEMPTS; DAY 3)
     Route: 065
  4. NON-PMN MORPHINE SULFATE [Suspect]
     Active Substance: MORPHINE SULFATE
     Dosage: 113 MG, DAILY THE PATIENT CONSUMED A DAILY AVERAGE OF 113 MG OF MORPHINE (131 BOOSTS AND 281 ATTEMP
     Route: 065
  5. NON-PMN MORPHINE SULFATE [Suspect]
     Active Substance: MORPHINE SULFATE
     Dosage: 1.5 MG, UNK (1.5 MG BOOSTS EVERY 20 MINUTES)
     Route: 065
  6. FENTANYL. [Suspect]
     Active Substance: FENTANYL
     Dosage: 117 MCG, Q1H (37 BOOSTS AND 56 ATTEMPTS; DAY 5)
     Route: 065
  7. FENTANYL. [Suspect]
     Active Substance: FENTANYL
     Dosage: 113 MCG, Q1H (22 BOOSTS AND 137 ATTEMPTS; DAY 1)
     Route: 065
  8. FENTANYL. [Suspect]
     Active Substance: FENTANYL
     Dosage: 90 MCG, Q1H (53 BOOSTS AND 160 ATTEMPTS; DAY 2)
     Route: 065
  9. FENTANYL. [Suspect]
     Active Substance: FENTANYL
     Indication: CANCER PAIN
     Dosage: 101 MCG, Q1H (39 BOOSTS AND 62 ATTEMPTS; DAY 4)
     Route: 065
  10. FENTANYL. [Suspect]
     Active Substance: FENTANYL
     Dosage: 20 MCG, UNK (20 MCG BOOSTS)
     Route: 065
  11. FENTANYL. [Suspect]
     Active Substance: FENTANYL
     Indication: PRODUCT USED FOR UNKNOWN INDICATION
     Dosage: 25 MCG, Q1H
     Route: 041

REACTIONS (3)
  - Sedation complication [Recovering/Resolving]
  - Drug use disorder [Recovering/Resolving]
  - Intentional device misuse [Recovering/Resolving]
